FAERS Safety Report 7944883-7 (Version None)
Quarter: 2011Q4

REPORT INFORMATION
  Report Type: 
  Country: None (occurrence: None)
  Receive Date: 20111122
  Receipt Date: 20110708
  Transmission Date: 20120403
  Serious: No
  Sender: FDA-Public Use
  Company Number: PHHY2011US55623

PATIENT
  Age: 54 Year
  Sex: Female

DRUGS (1)
  1. GILENYA [Suspect]
     Indication: MULTIPLE SCLEROSIS RELAPSE
     Dosage: 0.5 MG, DAILY, ORAL
     Route: 048
     Dates: start: 20110610

REACTIONS (3)
  - OEDEMA PERIPHERAL [None]
  - VISUAL IMPAIRMENT [None]
  - HEADACHE [None]
